FAERS Safety Report 19378257 (Version 4)
Quarter: 2022Q2

REPORT INFORMATION
  Report Type: Other
  Country: US (occurrence: None)
  Receive Date: 20210605
  Receipt Date: 20220512
  Transmission Date: 20220721
  Serious: Yes (Death, Other)
  Sender: FDA-Public Use
  Company Number: US-ROCHE-2843885

PATIENT
  Sex: Female

DRUGS (3)
  1. XELODA [Suspect]
     Active Substance: CAPECITABINE
     Indication: Breast cancer metastatic
     Dosage: TAKE 3 TABLETS BY MOUTH TWICE A DAY FOR 2 WEEKS ON AND 1 WEEKS OFF, TAKE 3 PILLS BY MOUTH
     Route: 048
  2. XELODA [Suspect]
     Active Substance: CAPECITABINE
     Indication: Breast cancer female
  3. ZOFRAN [Concomitant]
     Active Substance: ONDANSETRON HYDROCHLORIDE
     Route: 048

REACTIONS (4)
  - Lung neoplasm malignant [Unknown]
  - Pneumonia [Unknown]
  - Pneumothorax [Unknown]
  - Death [Fatal]
